FAERS Safety Report 10590759 (Version 2)
Quarter: 2014Q4

REPORT INFORMATION
  Report Type: Report from Study
  Country: CA (occurrence: CA)
  Receive Date: 20141118
  Receipt Date: 20141128
  Transmission Date: 20150529
  Serious: Yes (Hospitalization)
  Sender: FDA-Public Use
  Company Number: CA-BRISTOL-MYERS SQUIBB COMPANY-21581517

PATIENT
  Age: 70 Year
  Sex: Female

DRUGS (12)
  1. SINGULAIR [Concomitant]
     Active Substance: MONTELUKAST SODIUM
  2. VITAMIN B12 [Concomitant]
     Active Substance: CYANOCOBALAMIN
  3. ADVAIR HFA [Concomitant]
     Active Substance: FLUTICASONE PROPIONATE\SALMETEROL XINAFOATE
  4. ORENCIA [Suspect]
     Active Substance: ABATACEPT
     Indication: RHEUMATOID ARTHRITIS
     Route: 042
     Dates: start: 20141021
  5. SYNTHROID [Concomitant]
     Active Substance: LEVOTHYROXINE SODIUM
  6. VITAMIN D [Concomitant]
     Active Substance: CHOLECALCIFEROL
  7. CLONAZEPAM. [Concomitant]
     Active Substance: CLONAZEPAM
  8. SALBUTAMOL [Concomitant]
     Active Substance: ALBUTEROL
  9. PLAQUENIL [Concomitant]
     Active Substance: HYDROXYCHLOROQUINE SULFATE
  10. CODEINE [Concomitant]
     Active Substance: CODEINE
  11. NORVASC [Concomitant]
     Active Substance: AMLODIPINE BESYLATE
  12. CALCIUM [Concomitant]
     Active Substance: CALCIUM

REACTIONS (6)
  - Confusional state [Unknown]
  - Pneumonia streptococcal [Recovered/Resolved]
  - Asthenia [Unknown]
  - Peripheral coldness [Unknown]
  - Weight decreased [Unknown]
  - Dehydration [Unknown]

NARRATIVE: CASE EVENT DATE: 201410
